FAERS Safety Report 6663127-X (Version None)
Quarter: 2010Q2

REPORT INFORMATION
  Report Type: 
  Country: None (occurrence: None)
  Receive Date: 20100401
  Receipt Date: 20100330
  Transmission Date: 20101027
  Serious: Yes (Death)
  Sender: FDA-Public Use
  Company Number: DE-JNJFOC-20100204025

PATIENT

DRUGS (1)
  1. FENTANYL-25 [Suspect]
     Indication: PAIN
     Route: 062

REACTIONS (1)
  - MEGACOLON [None]
